FAERS Safety Report 8283643-7 (Version None)
Quarter: 2012Q2

REPORT INFORMATION
  Report Type: 
  Country: None (occurrence: None)
  Receive Date: 20120413
  Receipt Date: 20120411
  Transmission Date: 20120825
  Serious: Yes (Other)
  Sender: FDA-Public Use
  Company Number: PHEH2012US007805

PATIENT
  Sex: Male
  Weight: 99.79 kg

DRUGS (1)
  1. DIOVAN HCT [Suspect]
     Dosage: 320 MG, QD
     Dates: start: 20110817

REACTIONS (1)
  - TYPE 2 DIABETES MELLITUS [None]
